FAERS Safety Report 25921811 (Version 2)
Quarter: 2025Q4

REPORT INFORMATION
  Report Type: Report from Study
  Country: EU (occurrence: EU)
  Receive Date: 20251014
  Receipt Date: 20251015
  Transmission Date: 20260119
  Serious: Yes (Death, Life-Threatening, Hospitalization)
  Sender: ABBVIE
  Company Number: EU-ABBVIE-6502770

PATIENT
  Age: 73 Year
  Sex: Female

DRUGS (1)
  1. FOSCARBIDOPA\FOSLEVODOPA [Suspect]
     Active Substance: FOSCARBIDOPA\FOSLEVODOPA
     Indication: Product used for unknown indication
     Route: 058
     Dates: start: 20250516, end: 20251009

REACTIONS (1)
  - Terminal state [Fatal]

NARRATIVE: CASE EVENT DATE: 20250101
